FAERS Safety Report 25770717 (Version 1)
Quarter: 2025Q3

REPORT INFORMATION
  Report Type: Spontaneous
  Country: US (occurrence: US)
  Receive Date: 20250908
  Receipt Date: 20250908
  Transmission Date: 20251021
  Serious: No
  Sender: ROCHE
  Company Number: US-ROCHE-10000374571

PATIENT
  Sex: Female

DRUGS (17)
  1. ACTEMRA [Suspect]
     Active Substance: TOCILIZUMAB
     Indication: Pulmonary hypertension
     Dosage: STRENGTH: 20ML/SDV
     Route: 042
     Dates: start: 20250721
  2. ALBUTEROL [Concomitant]
     Active Substance: ALBUTEROL
  3. AMBRISENTAN [Concomitant]
     Active Substance: AMBRISENTAN
  4. BENZONATATE [Concomitant]
     Active Substance: BENZONATATE
  5. FAMOTIDINE [Concomitant]
     Active Substance: FAMOTIDINE
  6. HYDROXYCHLOROQUINE [Concomitant]
     Active Substance: HYDROXYCHLOROQUINE
  7. IPRATROPIUM [Concomitant]
     Active Substance: IPRATROPIUM
  8. LEVOFLOXACIN [Concomitant]
     Active Substance: LEVOFLOXACIN
  9. MONTELUKAST [Concomitant]
     Active Substance: MONTELUKAST
  10. MYCOPHENOLIC ACID [Concomitant]
     Active Substance: MYCOPHENOLIC ACID
  11. PREDNISONE [Concomitant]
     Active Substance: PREDNISONE
  12. PREDNISONE [Concomitant]
     Active Substance: PREDNISONE
  13. RABEPRAZOLE [Concomitant]
     Active Substance: RABEPRAZOLE
  14. SILDENAFIL C [Concomitant]
  15. TRAMADOL HCL [Concomitant]
     Active Substance: TRAMADOL HYDROCHLORIDE
  16. VALACYCLOVIR [Concomitant]
     Active Substance: VALACYCLOVIR HYDROCHLORIDE
  17. XIIDRA [Concomitant]
     Active Substance: LIFITEGRAST

REACTIONS (3)
  - Off label use [Unknown]
  - Epistaxis [Unknown]
  - Rhinorrhoea [Unknown]
